FAERS Safety Report 22614160 (Version 1)
Quarter: 2023Q2

REPORT INFORMATION
  Report Type: Other
  Country: FR (occurrence: None)
  Receive Date: 20230619
  Receipt Date: 20230619
  Transmission Date: 20230721
  Serious: Yes (Hospitalization, Other)
  Sender: FDA-Public Use
  Company Number: FR-ROCHE-2740011

PATIENT

DRUGS (3)
  1. RITUXIMAB [Suspect]
     Active Substance: RITUXIMAB
     Indication: Immune thrombocytopenia
     Route: 042
  2. AZATHIOPRINE [Suspect]
     Active Substance: AZATHIOPRINE
     Indication: Immune thrombocytopenia
     Dosage: 1 TO 3 MG/KG/DAY
     Route: 065
  3. MYCOPHENOLATE MOFETIL [Suspect]
     Active Substance: MYCOPHENOLATE MOFETIL
     Indication: Immune thrombocytopenia
     Route: 065

REACTIONS (8)
  - Infection [Unknown]
  - Bronchiectasis [Unknown]
  - Cytopenia [Unknown]
  - Serum sickness [Unknown]
  - Hypogammaglobulinaemia [Unknown]
  - Gastrointestinal disorder [Unknown]
  - Off label use [Unknown]
  - Off label use [Unknown]
